FAERS Safety Report 12555665 (Version 2)
Quarter: 2016Q3

REPORT INFORMATION
  Report Type: Spontaneous
  Country: US (occurrence: US)
  Receive Date: 20160714
  Receipt Date: 20160921
  Transmission Date: 20161109
  Serious: No
  Sender: FDA-Public Use
  Company Number: US-PFIZER INC-2016318672

PATIENT
  Age: 66 Year
  Sex: Female

DRUGS (5)
  1. ASPIRIN. [Concomitant]
     Active Substance: ASPIRIN
     Indication: BLOOD PRESSURE ABNORMAL
     Dosage: 81 MG, 1X/DAY
     Route: 048
     Dates: start: 2010
  2. XALATAN [Suspect]
     Active Substance: LATANOPROST
     Dosage: 2 GTT, (ONE DROP IN EACH EYE A BEDTIME DAILY)
     Dates: start: 2013
  3. ENALAPRIL/HYDROCHLOROTHIAZIDE [Concomitant]
     Active Substance: ENALAPRIL MALEATE\HYDROCHLOROTHIAZIDE
     Indication: HYPERTENSION
     Dosage: [ENALAPRIL MALEATE 10MG]/[HYDROCHLOROTHIAZIDE 25MG],1 TABLET, DAILY
     Route: 048
  4. XALATAN [Suspect]
     Active Substance: LATANOPROST
     Indication: OCULAR HYPERTENSION
     Dosage: 2 GTT, (1 DROP IN EACH EYE AT BEDTIME)
     Route: 047
  5. XALATAN [Suspect]
     Active Substance: LATANOPROST
     Dosage: 2 GTT, (ONE DROP IN EACH EYE A BEDTIME DAILY)
     Dates: start: 2013

REACTIONS (5)
  - Eye colour change [Recovering/Resolving]
  - Dry eye [Not Recovered/Not Resolved]
  - Eye pain [Recovering/Resolving]
  - Expired product administered [Recovered/Resolved]
  - Growth of eyelashes [Recovered/Resolved]

NARRATIVE: CASE EVENT DATE: 2015
